FAERS Safety Report 8850402 (Version 2)
Quarter: 2012Q4

REPORT INFORMATION
  Report Type: 
  Country: US (occurrence: US)
  Receive Date: 20121019
  Receipt Date: 20121109
  Transmission Date: 20130627
  Serious: No
  Sender: FDA-Public Use
  Company Number: US-TEVA-365149USA

PATIENT
  Age: 67 Year
  Sex: Male
  Weight: 122.58 kg

DRUGS (1)
  1. PROAIR HFA [Suspect]
     Indication: NASOPHARYNGITIS
     Route: 055
     Dates: start: 20121015

REACTIONS (3)
  - Blood glucose increased [Not Recovered/Not Resolved]
  - Heart rate increased [Not Recovered/Not Resolved]
  - Expired drug administered [Unknown]
